FAERS Safety Report 6871768-X (Version None)
Quarter: 2010Q3

REPORT INFORMATION
  Report Type: 
  Country: None (occurrence: None)
  Receive Date: 20100723
  Receipt Date: 20100714
  Transmission Date: 20110219
  Serious: Yes (Other)
  Sender: FDA-Public Use
  Company Number: A0871792A

PATIENT
  Age: 77 Year
  Sex: Male

DRUGS (2)
  1. MELPHALAN [Suspect]
     Indication: MULTIPLE MYELOMA
     Dosage: 6MG CYCLIC
     Route: 065
     Dates: start: 20090923
  2. REVLIMID [Suspect]
     Indication: MULTIPLE MYELOMA
     Dosage: 10MG CYCLIC
     Route: 048
     Dates: start: 20090923

REACTIONS (6)
  - ACCIDENT [None]
  - EYE INJURY [None]
  - FACE INJURY [None]
  - NEUTROPENIA [None]
  - SURGERY [None]
  - WHITE BLOOD CELL COUNT DECREASED [None]
